FAERS Safety Report 21244996 (Version 1)
Quarter: 2022Q3

REPORT INFORMATION
  Report Type: Spontaneous
  Country: US (occurrence: None)
  Receive Date: 20220823
  Receipt Date: 20220823
  Transmission Date: 20221027
  Serious: Yes (unspecified)
  Sender: FDA-Public Use
  Company Number: None

PATIENT
  Age: 69 Year
  Sex: Female
  Weight: 87.5 kg

DRUGS (2)
  1. OXALIPLATIN [Suspect]
     Active Substance: OXALIPLATIN
     Indication: Ovarian cyst
     Dosage: FREQUENCY : ONCE;?
     Route: 041
     Dates: start: 20220822, end: 20220822
  2. Hydrocortisone 100 mg IVP [Concomitant]
     Dates: start: 20220822, end: 20220822

REACTIONS (5)
  - Infusion related reaction [None]
  - Erythema [None]
  - Abdominal discomfort [None]
  - Back pain [None]
  - Pruritus [None]

NARRATIVE: CASE EVENT DATE: 20220822
